FAERS Safety Report 6509575-X (Version None)
Quarter: 2009Q4

REPORT INFORMATION
  Report Type: 
  Country: None (occurrence: None)
  Receive Date: 20091222
  Receipt Date: 20091210
  Transmission Date: 20100525
  Serious: Yes (Other)
  Sender: FDA-Public Use
  Company Number: DE-SANOFI-AVENTIS-2009SA010238

PATIENT
  Age: 40 Year
  Sex: Female

DRUGS (1)
  1. TELFAST [Suspect]
     Indication: DRUG USE FOR UNKNOWN INDICATION
     Route: 048
     Dates: start: 20060101

REACTIONS (2)
  - ARRHYTHMIA [None]
  - SYNCOPE [None]
